FAERS Safety Report 8206493-6 (Version None)
Quarter: 2012Q1

REPORT INFORMATION
  Report Type: 
  Country: None (occurrence: None)
  Receive Date: 20120313
  Receipt Date: 20120305
  Transmission Date: 20120608
  Serious: Yes (Hospitalization)
  Sender: FDA-Public Use
  Company Number: FR-ASTRAZENECA-2012SE12813

PATIENT
  Age: 30138 Day
  Sex: Female

DRUGS (10)
  1. TENORMIN [Suspect]
     Route: 048
     Dates: end: 20110901
  2. RISPERDAL [Suspect]
     Route: 048
     Dates: start: 20110916, end: 20110919
  3. CITALOPRAM HYDROBROMIDE [Concomitant]
     Route: 048
     Dates: end: 20110915
  4. TIAPRIDAL [Suspect]
     Route: 048
     Dates: end: 20110916
  5. ACETAMINOPHEN AND TRAMADOL HCL [Concomitant]
     Route: 048
     Dates: end: 20110915
  6. FENOFIBRATE [Concomitant]
  7. MEMANTINE HYDROCHLORIDE [Suspect]
     Route: 048
     Dates: start: 20110917, end: 20110919
  8. ARICEPT [Concomitant]
     Route: 048
  9. FERROUS SULFATE TAB [Concomitant]
  10. ATACAND [Concomitant]

REACTIONS (2)
  - CONVULSION [None]
  - HYPOTENSION [None]
